FAERS Safety Report 4589278-1 (Version None)
Quarter: 2005Q1

REPORT INFORMATION
  Report Type: 
  Country: None (occurrence: None)
  Receive Date: 20050216
  Receipt Date: 20050208
  Transmission Date: 20050727
  Serious: Yes (Hospitalization, Disabling)
  Sender: FDA-Public Use
  Company Number: HQ9829910JAN2002

PATIENT
  Age: 38 Year
  Sex: Female

DRUGS (4)
  1. DIMETAPP [Suspect]
     Indication: COUGH
     Dosage: ORAL
     Route: 048
     Dates: start: 19991225
  2. DIMETAPP [Suspect]
     Indication: NASOPHARYNGITIS
     Dosage: ORAL
     Route: 048
     Dates: start: 19991225
  3. COMTREX  (CHLORPHENAMINE MALEATE/DEXTROMETHORPHAN HYDROBROMIDE/PARACET [Suspect]
     Indication: COUGH
     Dosage: ORAL
     Route: 048
     Dates: start: 19991224
  4. COMTREX  (CHLORPHENAMINE MALEATE/DEXTROMETHORPHAN HYDROBROMIDE/PARACET [Suspect]
     Indication: NASOPHARYNGITIS
     Dosage: ORAL
     Route: 048
     Dates: start: 19991224

REACTIONS (1)
  - LACUNAR INFARCTION [None]
